FAERS Safety Report 7076760-0 (Version None)
Quarter: 2010Q4

REPORT INFORMATION
  Report Type: 
  Country: None (occurrence: None)
  Receive Date: 20101029
  Receipt Date: 20101029
  Transmission Date: 20110411
  Serious: Yes (Life-Threatening, Hospitalization)
  Sender: FDA-Public Use
  Company Number: None

PATIENT
  Sex: Female
  Weight: 70.7611 kg

DRUGS (6)
  1. SEROQUEL [Suspect]
     Indication: ANXIETY
     Dosage: ONE TAB 25MG 2 TIMES DAILY
     Dates: start: 20040101
  2. SEROQUEL [Suspect]
     Indication: INSOMNIA
     Dosage: ONE TAB 25MG 2 TIMES DAILY
     Dates: start: 20040101
  3. QUETIAPINE FUMARATE [Suspect]
     Indication: ANXIETY
     Dosage: ONE TAB 25MG 2 TIMES DAILY
     Dates: start: 20040101
  4. QUETIAPINE FUMARATE [Suspect]
     Indication: INSOMNIA
     Dosage: ONE TAB 25MG 2 TIMES DAILY
     Dates: start: 20040101
  5. PREMARIN [Suspect]
     Dates: end: 20070101
  6. PROVERA [Suspect]
     Dates: end: 20070101

REACTIONS (4)
  - CARDIAC FAILURE [None]
  - CHEST PAIN [None]
  - HEART RATE IRREGULAR [None]
  - MYOCARDIAL INFARCTION [None]
